FAERS Safety Report 5448168-2 (Version None)
Quarter: 2007Q3

REPORT INFORMATION
  Report Type: 
  Country: None (occurrence: None)
  Receive Date: 20070905
  Receipt Date: 20061213
  Transmission Date: 20080115
  Serious: Yes (Death)
  Sender: FDA-Public Use
  Company Number: 2006-151247-NL

PATIENT
  Age: 76 Year
  Sex: Female

DRUGS (2)
  1. MIRTAZAPINE [Suspect]
     Indication: DEPRESSION
     Dosage: 30 MG, ORAL
     Route: 048
     Dates: start: 20060509
  2. PRAZEPAM [Concomitant]

REACTIONS (11)
  - ANHEDONIA [None]
  - ANXIETY [None]
  - COMPLETED SUICIDE [None]
  - DISTURBANCE IN ATTENTION [None]
  - FATIGUE [None]
  - FEELING GUILTY [None]
  - HYPERSOMNIA [None]
  - INSOMNIA [None]
  - PSYCHOMOTOR HYPERACTIVITY [None]
  - PSYCHOMOTOR RETARDATION [None]
  - SUICIDAL IDEATION [None]
